FAERS Safety Report 21664700 (Version 1)
Quarter: 2022Q4

REPORT INFORMATION
  Report Type: Spontaneous
  Country: FR (occurrence: FR)
  Receive Date: 20221130
  Receipt Date: 20221130
  Transmission Date: 20230113
  Serious: Yes (Other)
  Sender: FDA-Public Use
  Company Number: FR-MYLANLABS-2022M1133275

PATIENT
  Age: 38 Year
  Sex: Female

DRUGS (2)
  1. PAROXETINE [Suspect]
     Active Substance: PAROXETINE
     Indication: Depression
     Dosage: 20 MILLIGRAM, QD (ONE TABLET PER DAY IN THE MORNING)
     Route: 065
     Dates: start: 202209
  2. PAROXETINE [Suspect]
     Active Substance: PAROXETINE
     Indication: Sleep disorder

REACTIONS (4)
  - Suicidal ideation [Unknown]
  - Memory impairment [Unknown]
  - Impaired work ability [Unknown]
  - Asthenia [Unknown]
